FAERS Safety Report 10004822 (Version 1)
Quarter: 2014Q1

REPORT INFORMATION
  Report Type: Spontaneous
  Country: KR (occurrence: KR)
  Receive Date: 20140312
  Receipt Date: 20140312
  Transmission Date: 20141002
  Serious: Yes (Hospitalization)
  Sender: FDA-Public Use
  Company Number: KR-SA-2014SA030747

PATIENT
  Age: 25 Year
  Sex: Male

DRUGS (22)
  1. RIFAMPICIN [Suspect]
     Indication: MENINGITIS TUBERCULOUS
     Route: 065
  2. RIFAMPICIN [Suspect]
     Indication: MENINGITIS TUBERCULOUS
     Route: 065
  3. RIFAMPICIN [Suspect]
     Indication: MENINGITIS TUBERCULOUS
     Route: 065
  4. RIFAMPICIN [Suspect]
     Indication: MENINGITIS TUBERCULOUS
     Route: 048
  5. RIFAMPICIN [Suspect]
     Indication: MENINGITIS TUBERCULOUS
     Route: 065
  6. RIFAMPICIN [Suspect]
     Indication: MENINGITIS TUBERCULOUS
     Route: 065
  7. RIFAMPICIN [Suspect]
     Indication: MENINGITIS TUBERCULOUS
     Route: 065
  8. RIFAMPICIN [Suspect]
     Indication: MENINGITIS TUBERCULOUS
     Route: 065
  9. PYRAZINAMIDE [Concomitant]
     Indication: MENINGITIS TUBERCULOUS
  10. PYRAZINAMIDE [Concomitant]
     Indication: MENINGITIS TUBERCULOUS
  11. PYRAZINAMIDE [Concomitant]
     Indication: MENINGITIS TUBERCULOUS
  12. PYRAZINAMIDE [Concomitant]
     Indication: MENINGITIS TUBERCULOUS
     Route: 048
  13. PYRAZINAMIDE [Concomitant]
     Indication: MENINGITIS TUBERCULOUS
     Route: 048
  14. PYRAZINAMIDE [Concomitant]
     Indication: MENINGITIS TUBERCULOUS
     Route: 048
  15. PYRAZINAMIDE [Concomitant]
     Indication: MENINGITIS TUBERCULOUS
     Route: 048
  16. PYRAZINAMIDE [Concomitant]
     Indication: MENINGITIS TUBERCULOUS
     Route: 048
  17. ISONIAZID [Concomitant]
     Indication: MENINGITIS TUBERCULOUS
  18. ISONIAZID [Concomitant]
     Indication: MENINGITIS TUBERCULOUS
  19. ISONIAZID [Concomitant]
     Indication: MENINGITIS TUBERCULOUS
  20. ETHAMBUTOL [Concomitant]
     Indication: MENINGITIS TUBERCULOUS
  21. ETHAMBUTOL [Concomitant]
     Indication: MENINGITIS TUBERCULOUS
  22. ETHAMBUTOL [Concomitant]
     Indication: MENINGITIS TUBERCULOUS

REACTIONS (27)
  - Serum sickness-like reaction [Recovered/Resolved]
  - Nausea [Recovered/Resolved]
  - Vomiting [Recovered/Resolved]
  - Abdominal discomfort [Recovered/Resolved]
  - Pain in extremity [Recovered/Resolved]
  - Hypoaesthesia [Recovered/Resolved]
  - Conjunctival haemorrhage [Recovered/Resolved]
  - C-reactive protein increased [Recovered/Resolved]
  - Red blood cell sedimentation rate increased [Recovered/Resolved]
  - Aspartate aminotransferase increased [Recovered/Resolved]
  - Alanine aminotransferase increased [Recovered/Resolved]
  - Complement factor C4 decreased [Recovered/Resolved]
  - Pyrexia [Recovered/Resolved]
  - Polyneuropathy [Recovered/Resolved]
  - Diarrhoea [Recovered/Resolved]
  - Epigastric discomfort [Recovered/Resolved]
  - Rash maculo-papular [Recovered/Resolved]
  - Papule [Recovered/Resolved]
  - Blister [Recovered/Resolved]
  - Anaphylactic reaction [Recovered/Resolved]
  - Condition aggravated [Recovered/Resolved]
  - Urticaria [Recovered/Resolved]
  - Blood pressure decreased [Recovered/Resolved]
  - Heart rate increased [Recovered/Resolved]
  - Dyspnoea [Recovered/Resolved]
  - Respiratory rate increased [Recovered/Resolved]
  - Chest discomfort [Recovered/Resolved]
